FAERS Safety Report 4932418-2 (Version None)
Quarter: 2006Q1

REPORT INFORMATION
  Report Type: 
  Country: None (occurrence: None)
  Receive Date: 20060301
  Receipt Date: 20060213
  Transmission Date: 20060701
  Serious: Yes (Hospitalization)
  Sender: FDA-Public Use
  Company Number: 8015042

PATIENT
  Age: 81 Year
  Sex: Female

DRUGS (2)
  1. KEPPRA [Suspect]
     Indication: EPILEPSY
     Dosage: 1 DF /D PO
     Route: 048
     Dates: start: 20060206, end: 20060209
  2. KEPPRA [Suspect]
     Indication: EPILEPSY
     Dosage: 3 DF /D PO
     Route: 048
     Dates: start: 20060210

REACTIONS (2)
  - MALABSORPTION [None]
  - STATUS EPILEPTICUS [None]
